FAERS Safety Report 8285777-X (Version None)
Quarter: 2012Q2

REPORT INFORMATION
  Report Type: 
  Country: None (occurrence: None)
  Receive Date: 20120413
  Receipt Date: 20120403
  Transmission Date: 20120825
  Serious: Yes (Hospitalization, Other)
  Sender: FDA-Public Use
  Company Number: US-ELI_LILLY_AND_COMPANY-US201201008071

PATIENT
  Sex: Female

DRUGS (1)
  1. FORTEO [Suspect]
     Indication: OSTEOPOROSIS
     Dosage: 20 UG, QD

REACTIONS (8)
  - INFECTION [None]
  - MALAISE [None]
  - AMNESIA [None]
  - HIP ARTHROPLASTY [None]
  - BRAIN INJURY [None]
  - UPPER LIMB FRACTURE [None]
  - FALL [None]
  - SURGERY [None]
